FAERS Safety Report 5517404-6 (Version None)
Quarter: 2007Q4

REPORT INFORMATION
  Report Type: 
  Country: None (occurrence: None)
  Receive Date: 20071114
  Receipt Date: 20071031
  Transmission Date: 20080405
  Serious: Yes (Other)
  Sender: FDA-Public Use
  Company Number: US-RANBAXY-2007US-11206

PATIENT

DRUGS (2)
  1. ISOTRETINOIN [Suspect]
     Indication: DRUG USE FOR UNKNOWN INDICATION
     Dosage: 40 MG, QD ALTERNATING BID
     Route: 048
     Dates: start: 20070910, end: 20071010
  2. AMNESTEEM (MYLAN) [Concomitant]
     Dosage: 40 MG,QD ALTERNATING BID
     Dates: start: 20070502, end: 20070906

REACTIONS (1)
  - PREGNANCY [None]
